FAERS Safety Report 4557212-6 (Version None)
Quarter: 2005Q1

REPORT INFORMATION
  Report Type: 
  Country: None (occurrence: None)
  Receive Date: 20050118
  Receipt Date: 20050104
  Transmission Date: 20050727
  Serious: Yes (Hospitalization)
  Sender: FDA-Public Use
  Company Number: 1515-083-1

PATIENT
  Age: 79 Year
  Sex: Female

DRUGS (5)
  1. VENOFER [Suspect]
     Indication: ANAEMIA
     Dosage: IV
     Route: 042
     Dates: start: 20031101, end: 20040104
  2. REUMACON [Concomitant]
  3. CALCICHEW-D3 [Concomitant]
  4. PULMICORT [Concomitant]
  5. PREDNISOLONE [Concomitant]

REACTIONS (6)
  - BLOOD POTASSIUM INCREASED [None]
  - DEHYDRATION [None]
  - GENERALISED OEDEMA [None]
  - MYALGIA [None]
  - OEDEMA PERIPHERAL [None]
  - RENAL FAILURE [None]
